FAERS Safety Report 5564566-0 (Version None)
Quarter: 2007Q4

REPORT INFORMATION
  Report Type: 
  Country: None (occurrence: None)
  Receive Date: 20071218
  Receipt Date: 20071211
  Transmission Date: 20080405
  Serious: Yes (Hospitalization, Other)
  Sender: FDA-Public Use
  Company Number: JP-BAYER-200710860BYL

PATIENT
  Age: 81 Year
  Sex: Male
  Weight: 38 kg

DRUGS (11)
  1. ASPIRIN [Suspect]
     Indication: ATRIAL FIBRILLATION
     Dosage: TOTAL DAILY DOSE: 100 MG  UNIT DOSE: 100 MG
     Route: 048
     Dates: start: 20070829, end: 20071015
  2. VASOLAN [Concomitant]
     Indication: ATRIAL FIBRILLATION
     Route: 048
  3. TEODO [Concomitant]
     Route: 048
  4. DIGOXIN [Concomitant]
     Indication: ATRIAL FIBRILLATION
     Route: 048
  5. AMLODIN [Concomitant]
     Dosage: TOTAL DAILY DOSE: 2.5 MG
     Route: 048
  6. WARFARIN SODIUM [Concomitant]
     Route: 048
     Dates: start: 20070830, end: 20071016
  7. MUCODYNE [Concomitant]
     Dosage: TOTAL DAILY DOSE: 750 MG
     Route: 048
  8. RADEN [Concomitant]
     Route: 048
  9. VE-NICOTINATE [Concomitant]
     Dosage: TOTAL DAILY DOSE: 300 MG
     Route: 048
  10. TERSIGAN [Concomitant]
     Route: 055
  11. GASCON [Concomitant]
     Route: 048
     Dates: start: 20071006

REACTIONS (6)
  - ABDOMINAL PAIN [None]
  - COLITIS [None]
  - COLITIS EROSIVE [None]
  - DIARRHOEA [None]
  - GASTROINTESTINAL EROSION [None]
  - MELAENA [None]
